FAERS Safety Report 18468971 (Version 2)
Quarter: 2020Q4

REPORT INFORMATION
  Report Type: Spontaneous
  Country: ES (occurrence: ES)
  Receive Date: 20201105
  Receipt Date: 20201130
  Transmission Date: 20210114
  Serious: Yes (Other)
  Sender: FDA-Public Use
  Company Number: ES-GILEAD-2020-0501413

PATIENT
  Age: 64 Year
  Sex: Male
  Weight: 80 kg

DRUGS (20)
  1. ATAZANAVIR + RITONAVIR [Concomitant]
     Active Substance: ATAZANAVIR\RITONAVIR
  2. OLANZAPINE. [Concomitant]
     Active Substance: OLANZAPINE
  3. LORAZEPAM. [Concomitant]
     Active Substance: LORAZEPAM
  4. DESVENLAFAXINE. [Concomitant]
     Active Substance: DESVENLAFAXINE
  5. TRUVADA [Suspect]
     Active Substance: EMTRICITABINE\TENOFOVIR DISOPROXIL FUMARATE
     Indication: HIV INFECTION
     Dosage: UNK
     Route: 065
     Dates: start: 1998, end: 2019
  6. REYATAZ [Concomitant]
     Active Substance: ATAZANAVIR SULFATE
  7. LAMOTRIGINE. [Concomitant]
     Active Substance: LAMOTRIGINE
  8. ALDACTONE-A [Concomitant]
     Active Substance: SPIRONOLACTONE
  9. PRISTIQ EXTENDED-RELEASE [Concomitant]
     Active Substance: DESVENLAFAXINE SUCCINATE
  10. MIRTAZAPINE. [Concomitant]
     Active Substance: MIRTAZAPINE
  11. DEPAKINE CRONO [VALPROATE SODIUM;VALPROIC ACID] [Concomitant]
  12. LISINOPRIL + HIDROCLOROTIAZIDA [Concomitant]
     Active Substance: HYDROCHLOROTHIAZIDE\LISINOPRIL
  13. LANTUS [Concomitant]
     Active Substance: INSULIN GLARGINE
  14. OMEPRAZOLE. [Concomitant]
     Active Substance: OMEPRAZOLE
  15. INSULIN [Concomitant]
     Active Substance: INSULIN NOS
  16. NORVIR [Concomitant]
     Active Substance: RITONAVIR
  17. JARDIANCE [Concomitant]
     Active Substance: EMPAGLIFLOZIN
  18. AMLODIPINE [Concomitant]
     Active Substance: AMLODIPINE BESYLATE
  19. HUMALOG [Concomitant]
     Active Substance: INSULIN LISPRO
  20. METFORMIN [Concomitant]
     Active Substance: METFORMIN HYDROCHLORIDE

REACTIONS (2)
  - Chronic kidney disease [Recovered/Resolved]
  - Treatment noncompliance [Unknown]
